FAERS Safety Report 9702643 (Version 1)
Quarter: 2013Q4

REPORT INFORMATION
  Report Type: Report from Study
  Country: PH (occurrence: PH)
  Receive Date: 20131121
  Receipt Date: 20131121
  Transmission Date: 20140711
  Serious: Yes (Death, Hospitalization, Other)
  Sender: FDA-Public Use
  Company Number: PH-BAXTER-2013BAX045609

PATIENT
  Sex: Male

DRUGS (5)
  1. DIANEAL PD2 WITH 1.5% DEXTROSE [Suspect]
     Indication: PERITONEAL DIALYSIS
     Route: 033
     Dates: start: 2012, end: 20131110
  2. CACO3 [Concomitant]
     Indication: PRODUCT USED FOR UNKNOWN INDICATION
  3. FESO4 [Concomitant]
     Indication: PRODUCT USED FOR UNKNOWN INDICATION
  4. AMLODIPINE [Concomitant]
     Indication: PRODUCT USED FOR UNKNOWN INDICATION
  5. EPO [Concomitant]
     Indication: PRODUCT USED FOR UNKNOWN INDICATION

REACTIONS (6)
  - Hypovolaemic shock [Fatal]
  - Septic shock [Fatal]
  - Upper gastrointestinal haemorrhage [Fatal]
  - Peripheral ischaemia [Fatal]
  - Ultrafiltration failure [Unknown]
  - Oedema [Unknown]
